FAERS Safety Report 5914693-0 (Version None)
Quarter: 2008Q4

REPORT INFORMATION
  Report Type: 
  Country: None (occurrence: None)
  Receive Date: 20081010
  Receipt Date: 20080930
  Transmission Date: 20090506
  Serious: Yes (Other)
  Sender: FDA-Public Use
  Company Number: US-JNJFOC-20081000562

PATIENT
  Sex: Female
  Weight: 122.47 kg

DRUGS (8)
  1. FENTANYL TRANSDERMAL SYSTEM [Suspect]
     Indication: PAIN
     Route: 062
  2. DURAGESIC-100 [Suspect]
     Indication: PAIN
     Route: 062
  3. MYLAN [Suspect]
     Indication: PAIN
     Route: 062
  4. EFFEXOR [Concomitant]
     Indication: DEPRESSION
     Route: 048
  5. ZOLOFT [Concomitant]
     Indication: DEPRESSION
     Route: 048
  6. ATIVAN [Concomitant]
     Indication: DEPRESSION
     Route: 048
  7. METFORMIN HCL [Concomitant]
     Indication: DIABETES MELLITUS
     Route: 048
  8. TRAMADOL HCL [Concomitant]
     Indication: PAIN
     Dosage: 50 MG 2 TABLETS, 3 TIMES PER DAY AS NEEDED
     Route: 048

REACTIONS (5)
  - BLOOD CHOLESTEROL INCREASED [None]
  - DIABETES MELLITUS [None]
  - INAPPROPRIATE SCHEDULE OF DRUG ADMINISTRATION [None]
  - MUSCLE SPASMS [None]
  - WEIGHT DECREASED [None]
